FAERS Safety Report 10884852 (Version 1)
Quarter: 2015Q1

REPORT INFORMATION
  Report Type: Spontaneous
  Country: IT (occurrence: IT)
  Receive Date: 20150304
  Receipt Date: 20150304
  Transmission Date: 20150721
  Serious: Yes (Other)
  Sender: FDA-Public Use
  Company Number: IT-JNJFOC-20141013492

PATIENT
  Age: 20 Year
  Sex: Female
  Weight: 67 kg

DRUGS (2)
  1. ISOCEF [Suspect]
     Active Substance: CEFTIBUTEN
     Indication: PRODUCT USED FOR UNKNOWN INDICATION
     Route: 065
  2. SPORANOX [Suspect]
     Active Substance: ITRACONAZOLE\SODIUM CHLORIDE
     Indication: GENITAL CANDIDIASIS
     Route: 048
     Dates: start: 20141017, end: 20141017

REACTIONS (3)
  - Lip oedema [Recovered/Resolved]
  - Dysphagia [Recovered/Resolved]
  - Skin depigmentation [Recovered/Resolved]

NARRATIVE: CASE EVENT DATE: 20141017
